FAERS Safety Report 9736960 (Version 2)
Quarter: 2013Q4

REPORT INFORMATION
  Report Type: Report from Study
  Country: CA (occurrence: CA)
  Receive Date: 20131206
  Receipt Date: 20131206
  Transmission Date: 20140711
  Serious: Yes (Death, Hospitalization)
  Sender: FDA-Public Use
  Company Number: PHHY2010CA82290

PATIENT
  Age: 52 Year
  Sex: Male

DRUGS (6)
  1. ZOMETA [Suspect]
     Indication: RENAL CELL CARCINOMA
     Dosage: 4 MG, EVERY 4 WEEKS
     Route: 042
     Dates: start: 20101201
  2. ZOMETA [Suspect]
     Dosage: 4 MG, EVERY 8 WEEKS
     Route: 042
  3. ZOMETA [Suspect]
     Dosage: 4 MG, EVERY 2 MONTHS
     Route: 042
  4. ZOMETA [Suspect]
     Dosage: 4 MG, Q 2 MONTHS
     Route: 042
  5. SUTENT [Concomitant]
     Dosage: UNK UKN, UNK
  6. ANTIBIOTICS [Concomitant]
     Dosage: UNK UKN, UNK
     Dates: start: 20130522

REACTIONS (16)
  - Death [Fatal]
  - Chest pain [Unknown]
  - Body temperature decreased [Unknown]
  - Nasopharyngitis [Unknown]
  - Pyrexia [Recovering/Resolving]
  - Fatigue [Recovering/Resolving]
  - Malaise [Unknown]
  - Vomiting [Recovering/Resolving]
  - Nausea [Recovering/Resolving]
  - Decreased appetite [Recovering/Resolving]
  - Abdominal pain upper [Recovering/Resolving]
  - Oral pain [Recovered/Resolved]
  - Gingival pain [Unknown]
  - Pain in jaw [Unknown]
  - Blood pressure increased [Unknown]
  - Asthenia [Unknown]
